FAERS Safety Report 8295156-7 (Version None)
Quarter: 2012Q2

REPORT INFORMATION
  Report Type: 
  Country: None (occurrence: None)
  Receive Date: 20120418
  Receipt Date: 20120416
  Transmission Date: 20120825
  Serious: Yes (Hospitalization)
  Sender: FDA-Public Use
  Company Number: CA-PFIZER INC-2012043212

PATIENT
  Age: 48 Year
  Sex: Male
  Weight: 90.703 kg

DRUGS (6)
  1. HYDROMORPHONE HCL [Concomitant]
     Indication: PAIN
     Dosage: 24 MG, 1 CAPSULE 2X
  2. METFORMIN HCL [Concomitant]
     Indication: DIABETES MELLITUS
     Dosage: 500 MG, 1 TABLET 3X
  3. VARENICLINE TARTRATE [Suspect]
     Indication: SMOKING CESSATION THERAPY
     Dosage: 1 TABLET 2X/DAY
     Dates: start: 20111001, end: 20120127
  4. QUETIAPINE [Concomitant]
     Indication: DYSKINESIA
     Dosage: 25 MG, 1 TABLET AT BEDTIME
  5. HUMALOG [Concomitant]
     Indication: DIABETES MELLITUS
     Dosage: 10 CC IN AM, 14 CC IN PM
  6. ELAVIL [Concomitant]
     Indication: CLUSTER HEADACHE
     Dosage: 50 MG, 2 TABLETS AT BEDTIME

REACTIONS (3)
  - ABNORMAL DREAMS [None]
  - ABNORMAL BEHAVIOUR [None]
  - AMNESIA [None]
